FAERS Safety Report 16875094 (Version 1)
Quarter: 2019Q4

REPORT INFORMATION
  Report Type: Spontaneous
  Country: US (occurrence: US)
  Receive Date: 20191001
  Receipt Date: 20191001
  Transmission Date: 20200122
  Serious: Yes (Death, Disabling, Other)
  Sender: FDA-Public Use
  Company Number: US-009507513-1909USA010588

PATIENT
  Age: 46 Year
  Sex: Male

DRUGS (12)
  1. PACLITAXEL. [Suspect]
     Active Substance: PACLITAXEL
     Indication: HEPATOCELLULAR CARCINOMA
     Dosage: 175 MILLIGRAM/SQ. METER, Q3W
     Route: 042
     Dates: start: 20190423
  2. CARBOPLATIN. [Suspect]
     Active Substance: CARBOPLATIN
     Indication: LUNG SQUAMOUS CELL CARCINOMA STAGE IV
     Dosage: AREA UNDER THE CURVE (AUC) 6
     Route: 042
     Dates: start: 20190402
  3. K-PHOS NEUTRAL [Concomitant]
     Active Substance: POTASSIUM PHOSPHATE\SODIUM PHOSPHATE
     Dosage: 2 TABLETS (500MG TOTAL) 3 TIMES DAILY
     Route: 048
     Dates: start: 20190324, end: 20190501
  4. KEYTRUDA [Suspect]
     Active Substance: PEMBROLIZUMAB
     Indication: HEPATOCELLULAR CARCINOMA
     Dosage: UNK
     Route: 042
     Dates: start: 20190423
  5. KEYTRUDA [Suspect]
     Active Substance: PEMBROLIZUMAB
     Indication: LUNG SQUAMOUS CELL CARCINOMA STAGE IV
     Dosage: UNK UNK, Q3W
     Route: 042
     Dates: start: 20190402
  6. REMERON [Suspect]
     Active Substance: MIRTAZAPINE
     Indication: DECREASED APPETITE
     Dosage: 1 TABLET (15MG TOTAL) NIGHTLY
     Route: 048
     Dates: start: 20190416, end: 20190501
  7. CARBOPLATIN. [Suspect]
     Active Substance: CARBOPLATIN
     Indication: HEPATOCELLULAR CARCINOMA
     Dosage: AREA UNDER THE CURVE (AUC) 6
     Route: 042
     Dates: start: 20190423
  8. THIAMINE. [Concomitant]
     Active Substance: THIAMINE
     Dosage: 1 TABLET (100MG) DAILY
     Route: 048
     Dates: start: 20190324, end: 20190501
  9. PACLITAXEL. [Suspect]
     Active Substance: PACLITAXEL
     Indication: LUNG SQUAMOUS CELL CARCINOMA STAGE IV
     Dosage: 175 MILLIGRAM/SQ. METER, Q3W
     Route: 042
     Dates: start: 20190402
  10. MAG OX [Concomitant]
     Active Substance: MAGNESIUM OXIDE
     Dosage: 1 TABLET (400MG TOTAL) DAILY
     Route: 048
     Dates: start: 20190416, end: 20190501
  11. KLOR-CON [Concomitant]
     Active Substance: POTASSIUM CHLORIDE
     Dosage: 2 TABLETS (20MG TOTAL) DAILY
     Route: 048
     Dates: start: 20190416, end: 20190501
  12. FOLVITE [Concomitant]
     Active Substance: FOLIC ACID
     Dosage: 1 TABLET (1MG TOTAL) DAILY
     Route: 048
     Dates: start: 20190416, end: 20190501

REACTIONS (52)
  - Alanine aminotransferase decreased [Unknown]
  - Haematocrit abnormal [Unknown]
  - Haemoglobin abnormal [Unknown]
  - Mean cell haemoglobin concentration abnormal [Unknown]
  - Red blood cell count abnormal [Unknown]
  - Blood bilirubin increased [Unknown]
  - Blood alkaline phosphatase increased [Unknown]
  - Blood alkaline phosphatase increased [Unknown]
  - Aspartate aminotransferase increased [Unknown]
  - Product use issue [Unknown]
  - Product use in unapproved indication [Unknown]
  - Cancer pain [Unknown]
  - Abdominal pain [Unknown]
  - Wheelchair user [Unknown]
  - Gastrooesophageal reflux disease [Unknown]
  - Breath sounds abnormal [Unknown]
  - Mean cell haemoglobin concentration abnormal [Unknown]
  - Mean cell volume abnormal [Unknown]
  - Mean cell volume abnormal [Unknown]
  - Blood potassium decreased [Unknown]
  - Nausea [Unknown]
  - Feeling abnormal [Unknown]
  - Blood glucose decreased [Unknown]
  - Haemoglobin abnormal [Unknown]
  - Protein total increased [Unknown]
  - Blood bilirubin increased [Unknown]
  - Decreased appetite [Unknown]
  - Blood albumin decreased [Unknown]
  - Blood albumin decreased [Unknown]
  - Carbon dioxide decreased [Unknown]
  - Mean cell haemoglobin increased [Unknown]
  - Mean cell haemoglobin increased [Unknown]
  - Red cell distribution width increased [Unknown]
  - Aspartate aminotransferase increased [Unknown]
  - Blood sodium decreased [Unknown]
  - Death [Fatal]
  - Blood chloride decreased [Unknown]
  - Haematocrit abnormal [Unknown]
  - White blood cell count abnormal [Unknown]
  - White blood cell count abnormal [Unknown]
  - Pain [Unknown]
  - Balance disorder [Unknown]
  - Dry throat [Unknown]
  - Alanine aminotransferase decreased [Unknown]
  - Blood glucose decreased [Unknown]
  - Blood potassium increased [Unknown]
  - Carbon dioxide decreased [Unknown]
  - Platelet count abnormal [Unknown]
  - Protein total increased [Unknown]
  - Red blood cell count abnormal [Unknown]
  - Red cell distribution width increased [Unknown]
  - Blood sodium decreased [Unknown]

NARRATIVE: CASE EVENT DATE: 201904
